FAERS Safety Report 4617668-7 (Version None)
Quarter: 2005Q1

REPORT INFORMATION
  Report Type: 
  Country: None (occurrence: None)
  Receive Date: 20050322
  Receipt Date: 20050315
  Transmission Date: 20050727
  Serious: Yes (Life-Threatening)
  Sender: FDA-Public Use
  Company Number: 2005AP01333

PATIENT
  Age: 32 Year
  Sex: Female
  Weight: 34.6 kg

DRUGS (1)
  1. IRESSA [Suspect]
     Indication: LUNG ADENOCARCINOMA
     Dosage: 250 MG DAILY PO
     Route: 048
     Dates: start: 20030605, end: 20050209

REACTIONS (5)
  - DEMYELINATION [None]
  - DYSPHAGIA [None]
  - DYSPNOEA [None]
  - LOBAR PNEUMONIA [None]
  - PYREXIA [None]
